FAERS Safety Report 9055402 (Version 1)
Quarter: 2013Q1

REPORT INFORMATION
  Report Type: Spontaneous
  Country: US (occurrence: US)
  Receive Date: 20130206
  Receipt Date: 20130206
  Transmission Date: 20140127
  Serious: Yes (Death, Other)
  Sender: FDA-Public Use
  Company Number: US-BAYER-2013-010701

PATIENT
  Age: 50 Year
  Sex: Female
  Weight: 68.03 kg

DRUGS (11)
  1. YASMIN [Suspect]
  2. LEVOXYL [Concomitant]
     Indication: THYROID DISORDER
     Dosage: 112 MCG, UNK
  3. ATENOLOL [Concomitant]
     Indication: VENTRICULAR EXTRASYSTOLES
     Dosage: 50 MG, UNK
  4. KLONOPIN [Concomitant]
     Dosage: 1 MG; 0.5 MG TABLETS DISPENSED
  5. REMERON [Concomitant]
     Dosage: 15 MG, UNK
  6. AMITRIPTYLINE [Concomitant]
     Dosage: 75 MG, UNK
  7. AMINO ACID [Concomitant]
     Dosage: 1000 [TIMES] 2
  8. TAURINE [Concomitant]
     Dosage: 500 MG (2), UNK
  9. TRETINOIN [Concomitant]
     Dosage: 0.05 %, UNK
  10. BUSPIRONE [Concomitant]
     Dosage: 15 MG, UNK
  11. LITHIUM CARBONATE [Concomitant]
     Dosage: 300 MG, UNK

REACTIONS (2)
  - Pulmonary embolism [Fatal]
  - Cholelithiasis [None]
